FAERS Safety Report 5226349-0 (Version None)
Quarter: 2007Q1

REPORT INFORMATION
  Report Type: 
  Country: None (occurrence: None)
  Receive Date: 20070129
  Receipt Date: 20070116
  Transmission Date: 20070707
  Serious: No
  Sender: FDA-Public Use
  Company Number: ORACEA-2007-0002

PATIENT
  Age: 85 Year
  Sex: Female

DRUGS (5)
  1. ORACEA [Suspect]
     Indication: PSORIASIS
     Dosage: 40MG, QD; PO
     Route: 048
     Dates: start: 20061201, end: 20061230
  2. CLONIDINE [Concomitant]
  3. TOPROL-XL [Concomitant]
  4. PREVACID [Concomitant]
  5. AVELIDE [Concomitant]

REACTIONS (4)
  - ABDOMINAL DISTENSION [None]
  - GASTROOESOPHAGEAL REFLUX DISEASE [None]
  - PAIN [None]
  - URINARY RETENTION [None]
